FAERS Safety Report 9552752 (Version 2)
Quarter: 2013Q3

REPORT INFORMATION
  Report Type: Spontaneous
  Country: US (occurrence: US)
  Receive Date: 20130925
  Receipt Date: 20130925
  Transmission Date: 20140515
  Serious: Yes (Other)
  Sender: FDA-Public Use
  Company Number: US-NAPPMUNDI-USA-2012-0092176

PATIENT
  Sex: Male

DRUGS (4)
  1. MORPHINE SULFATE (SIMILAR TO NDA 19-516) [Suspect]
     Indication: DRUG ABUSE
  2. AMPHETAMINE [Suspect]
     Indication: DRUG ABUSE
  3. METHAMPHETAMINE [Suspect]
     Indication: DRUG ABUSE
  4. OXAZEPAM [Suspect]
     Indication: DRUG ABUSE

REACTIONS (4)
  - Drug abuse [Unknown]
  - Gait disturbance [Unknown]
  - Dysarthria [Unknown]
  - Abnormal behaviour [Unknown]
